FAERS Safety Report 11546694 (Version 3)
Quarter: 2016Q4

REPORT INFORMATION
  Report Type: Spontaneous
  Country: US (occurrence: US)
  Receive Date: 20150924
  Receipt Date: 20161230
  Transmission Date: 20170206
  Serious: No
  Sender: FDA-Public Use
  Company Number: US-PFIZER INC-2015305726

PATIENT
  Age: 82 Year
  Sex: Male

DRUGS (2)
  1. SUTENT [Suspect]
     Active Substance: SUNITINIB MALATE
     Dosage: 50 MG DAILY, CYCLIC FOR 4 WEEKS
     Dates: start: 20150404, end: 20150415
  2. SUTENT [Suspect]
     Active Substance: SUNITINIB MALATE
     Dosage: 37.5 MG, Q DAY X 4 WEEKS ON, 2 WEEKS OFF
     Dates: start: 20150415

REACTIONS (7)
  - Rash [Unknown]
  - Flatulence [Unknown]
  - Dyspepsia [Unknown]
  - Pain in extremity [Unknown]
  - Scab [Unknown]
  - Chest pain [Unknown]
  - Vomiting [Unknown]

NARRATIVE: CASE EVENT DATE: 2015
